FAERS Safety Report 8771776 (Version 3)
Quarter: 2012Q4

REPORT INFORMATION
  Report Type: 
  Country: US (occurrence: US)
  Receive Date: 20120905
  Receipt Date: 20121214
  Transmission Date: 20130627
  Serious: No
  Sender: FDA-Public Use
  Company Number: US-ASTRAZENECA-2012SE60441

PATIENT
  Age: 50 Year
  Sex: Female

DRUGS (1)
  1. SEROQUEL XR [Suspect]
     Route: 048

REACTIONS (5)
  - Fall [Unknown]
  - Insomnia [Unknown]
  - Pain [Unknown]
  - Influenza [Unknown]
  - Drug dose omission [Unknown]
